FAERS Safety Report 25197334 (Version 1)
Quarter: 2025Q2

REPORT INFORMATION
  Report Type: Spontaneous
  Country: US (occurrence: US)
  Receive Date: 20250415
  Receipt Date: 20250415
  Transmission Date: 20250717
  Serious: No
  Sender: UROGEN PHARMA
  Company Number: US-UROGEN PHARMA LTD.-2025-UGN-000022

PATIENT

DRUGS (4)
  1. JELMYTO [Suspect]
     Active Substance: MITOMYCIN
     Indication: Transitional cell cancer of the renal pelvis and ureter
     Dosage: 8ML ONCE A WEEK (INSTILLATION)
     Dates: start: 20250129, end: 20250129
  2. JELMYTO [Suspect]
     Active Substance: MITOMYCIN
     Dosage: 8ML ONCE A WEEK (INSTILLATION)
     Dates: start: 20250205, end: 20250205
  3. JELMYTO [Suspect]
     Active Substance: MITOMYCIN
     Dosage: 8ML ONCE A WEEK (INSTILLATION)
     Dates: start: 20250212, end: 20250212
  4. JELMYTO [Suspect]
     Active Substance: MITOMYCIN
     Dosage: 8ML ONCE A WEEK (INSTILLATION)
     Dates: start: 20250220, end: 20250220

REACTIONS (1)
  - Urinary tract infection [Not Recovered/Not Resolved]

NARRATIVE: CASE EVENT DATE: 20250221
